FAERS Safety Report 25928998 (Version 1)
Quarter: 2025Q4

REPORT INFORMATION
  Report Type: Spontaneous
  Country: EU (occurrence: EU)
  Receive Date: 20251016
  Receipt Date: 20251016
  Transmission Date: 20260118
  Serious: Yes (Hospitalization)
  Sender: RANBAXY
  Company Number: EU-SUN PHARMACEUTICAL INDUSTRIES LTD-2025RR-531132

PATIENT
  Age: 69 Year
  Sex: Female

DRUGS (1)
  1. GEMCITABINE [Suspect]
     Active Substance: GEMCITABINE
     Indication: Lung adenocarcinoma
     Dosage: UNK
     Route: 065

REACTIONS (10)
  - Diarrhoea [Unknown]
  - Malaise [Unknown]
  - Vomiting [Unknown]
  - Anaemia [Recovering/Resolving]
  - Visual impairment [Unknown]
  - C-reactive protein increased [Recovering/Resolving]
  - Acute kidney injury [Recovering/Resolving]
  - Moraxella test positive [Unknown]
  - Oral candidiasis [Unknown]
  - Fatigue [Recovered/Resolved]

NARRATIVE: CASE EVENT DATE: 20250601
